FAERS Safety Report 23167001 (Version 1)
Quarter: 2023Q4

REPORT INFORMATION
  Report Type: Spontaneous
  Country: DE (occurrence: DE)
  Receive Date: 20231109
  Receipt Date: 20231109
  Transmission Date: 20240109
  Serious: Yes (Life-Threatening)
  Sender: FDA-Public Use
  Company Number: None

PATIENT
  Age: 59 Year
  Sex: Male
  Weight: 95 kg

DRUGS (14)
  1. PAXLOVID [Suspect]
     Active Substance: NIRMATRELVIR\RITONAVIR
     Indication: COVID-19 treatment
     Dosage: [NIRMATRELVIR 300 MG]/[RITONAVIR 100 MG]; 2X/DAY
     Route: 048
     Dates: start: 20230925, end: 20230930
  2. PAXLOVID [Suspect]
     Active Substance: NIRMATRELVIR\RITONAVIR
     Indication: COVID-19
  3. INSULIN NOS [Concomitant]
     Active Substance: INSULIN NOS
     Indication: Type 1 diabetes mellitus
     Dosage: UNK
  4. ATORVASTATIN [Concomitant]
     Active Substance: ATORVASTATIN
     Dosage: 0-0-1 - PAUSED DURING PAXLOVID INTAKE
  5. TELMISARTAN [Concomitant]
     Active Substance: TELMISARTAN
     Dosage: 2 DF, 2X/DAY
  6. SINOLPAN FORTE [Concomitant]
     Indication: Increased bronchial secretion
     Dosage: 200 MG, 3X/DAY
  7. MOXONIDIN 1 A PHARM [Concomitant]
     Dosage: 0-1-0
  8. LERCANIDIPINE [Concomitant]
     Active Substance: LERCANIDIPINE
     Dosage: 1-0-0 - PAUSED DURING PAXLOVID INTAKE
  9. SPIRONOLACTONE [Concomitant]
     Active Substance: SPIRONOLACTONE
     Dosage: 1-0-0
  10. NOVORAPID [Concomitant]
     Active Substance: INSULIN ASPART
     Dosage: VIA INSULIN PUMP
  11. SPIRIVA [Concomitant]
     Active Substance: TIOTROPIUM BROMIDE MONOHYDRATE
     Dosage: 1-0-0
  12. LEVOTHYROXINE SODIUM [Concomitant]
     Active Substance: LEVOTHYROXINE SODIUM
     Dosage: 50 UG, 1X/DAY 1-0-0 - PAUSED DURING PAXLOVID INTAKE
  13. BUDESONIDE [Concomitant]
     Active Substance: BUDESONIDE
     Dosage: 1-0-1
  14. METAMIZOLE SODIUM [Concomitant]
     Active Substance: METAMIZOLE SODIUM
     Indication: Pain
     Dosage: 1-2 TABLETS UP TO 4X/DAY - TRY TO AVOID DURING PAXLOVID INTAKE

REACTIONS (3)
  - Hyperglycaemia [Recovered/Resolved]
  - Dry mouth [Recovered/Resolved]
  - Insulin resistance [Unknown]

NARRATIVE: CASE EVENT DATE: 20230925
